FAERS Safety Report 10610791 (Version 1)
Quarter: 2014Q4

REPORT INFORMATION
  Report Type: Spontaneous
  Country: US (occurrence: US)
  Receive Date: 20141126
  Receipt Date: 20141126
  Transmission Date: 20150529
  Serious: No
  Sender: FDA-Public Use
  Company Number: US-MALLINCKRODT-T201305155

PATIENT
  Sex: Male

DRUGS (2)
  1. GABLOFEN [Suspect]
     Active Substance: BACLOFEN
     Dosage: 85 MCG/DAY
     Route: 037
     Dates: end: 20130605
  2. GABLOFEN [Suspect]
     Active Substance: BACLOFEN
     Indication: PRODUCT USED FOR UNKNOWN INDICATION
     Dosage: 114.94 MCG/DAY
     Route: 037
     Dates: start: 20130605

REACTIONS (4)
  - Musculoskeletal stiffness [Unknown]
  - Wrong technique in drug usage process [Unknown]
  - Drug dose omission [Recovered/Resolved]
  - Clonus [Unknown]
